FAERS Safety Report 8162259-7 (Version None)
Quarter: 2012Q1

REPORT INFORMATION
  Report Type: 
  Country: None (occurrence: None)
  Receive Date: 20120224
  Receipt Date: 20120216
  Transmission Date: 20120608
  Serious: Yes (Hospitalization, Other)
  Sender: FDA-Public Use
  Company Number: US-ASTELLAS-2012US001941

PATIENT
  Sex: Female
  Weight: 60 kg

DRUGS (3)
  1. PROGRAF [Suspect]
     Indication: RENAL TRANSPLANT
     Dosage: 4 MG, BID
     Route: 048
     Dates: start: 20040525
  2. PROGRAF [Suspect]
     Indication: PANCREAS TRANSPLANT
  3. MYCOPHENOLATE MOFETIL (CELLCEPT) [Concomitant]
     Indication: RENAL TRANSPLANT
     Dosage: 1000 MG, BID
     Route: 048
     Dates: start: 20040525

REACTIONS (5)
  - HOSPITALISATION [None]
  - INFECTION [None]
  - PANCREAS TRANSPLANT [None]
  - OFF LABEL USE [None]
  - TRANSPLANT FAILURE [None]
